FAERS Safety Report 8558735-5 (Version None)
Quarter: 2012Q3

REPORT INFORMATION
  Report Type: 
  Country: None (occurrence: None)
  Receive Date: 20120801
  Receipt Date: 20120726
  Transmission Date: 20120928
  Serious: Yes (Hospitalization)
  Sender: FDA-Public Use
  Company Number: CA-ROCHE-675480

PATIENT
  Sex: Male

DRUGS (4)
  1. MABTHERA [Suspect]
     Indication: NON-HODGKIN'S LYMPHOMA
     Dosage: UNK
     Route: 042
     Dates: start: 20090730, end: 20090910
  2. GEMCITABINE HYDROCHLORIDE [Suspect]
     Indication: NON-HODGKIN'S LYMPHOMA
     Dosage: UNK
     Route: 042
     Dates: start: 20090730, end: 20090910
  3. DEXAMETHASONE AND DEXAMETHASONE [Suspect]
     Indication: NON-HODGKIN'S LYMPHOMA
     Dosage: UNK
     Route: 065
     Dates: start: 20090730, end: 20090910
  4. CISPLATIN [Suspect]
     Indication: NON-HODGKIN'S LYMPHOMA
     Dosage: UNK
     Route: 042
     Dates: start: 20090730, end: 20090910

REACTIONS (10)
  - VASCULITIS [None]
  - ALANINE AMINOTRANSFERASE INCREASED [None]
  - HEADACHE [None]
  - PYREXIA [None]
  - ASPARTATE AMINOTRANSFERASE INCREASED [None]
  - PLEURAL EFFUSION [None]
  - AORTITIS [None]
  - ATELECTASIS [None]
  - HAEMOGLOBIN DECREASED [None]
  - ROAD TRAFFIC ACCIDENT [None]
